FAERS Safety Report 18636019 (Version 1)
Quarter: 2020Q4

REPORT INFORMATION
  Report Type: Spontaneous
  Country: US (occurrence: US)
  Receive Date: 20201218
  Receipt Date: 20201218
  Transmission Date: 20210114
  Serious: No
  Sender: FDA-Public Use
  Company Number: US-ASTRAZENECA-2020SF57250

PATIENT
  Age: 27779 Day
  Sex: Female
  Weight: 59 kg

DRUGS (6)
  1. LISINOPRIL. [Concomitant]
     Active Substance: LISINOPRIL
     Indication: DIABETES MELLITUS
     Route: 048
     Dates: start: 2012
  2. AGGRANOX [Concomitant]
     Indication: BLOOD DISORDER
     Dosage: TWO TIMES A DAY
     Route: 048
     Dates: start: 2006
  3. AGGRANOX [Concomitant]
     Indication: TRANSIENT ISCHAEMIC ATTACK
     Dosage: TWO TIMES A DAY
     Route: 048
     Dates: start: 2006
  4. FARXIGA [Suspect]
     Active Substance: DAPAGLIFLOZIN PROPANEDIOL
     Indication: DIABETES MELLITUS
     Route: 048
     Dates: start: 20201016
  5. BYDUREON BCISE [Suspect]
     Active Substance: EXENATIDE
     Indication: TYPE 2 DIABETES MELLITUS
     Route: 058
     Dates: start: 20200907
  6. PRAVASTATIN. [Concomitant]
     Active Substance: PRAVASTATIN
     Indication: BLOOD CHOLESTEROL ABNORMAL
     Dosage: 40MEQ/L TWO TIMES A DAY
     Route: 048
     Dates: start: 2004

REACTIONS (3)
  - Memory impairment [Unknown]
  - Injection site mass [Unknown]
  - Injection site pain [Unknown]

NARRATIVE: CASE EVENT DATE: 20200921
